FAERS Safety Report 6405826-0 (Version None)
Quarter: 2009Q4

REPORT INFORMATION
  Report Type: 
  Country: None (occurrence: None)
  Receive Date: 20091019
  Receipt Date: 20091006
  Transmission Date: 20100525
  Serious: Yes (Other)
  Sender: FDA-Public Use
  Company Number: GB-MERCK-0910GBR00031

PATIENT
  Sex: Female

DRUGS (3)
  1. ZETIA [Suspect]
     Route: 048
     Dates: start: 20090701, end: 20090101
  2. SIMVASTATIN [Concomitant]
     Route: 065
  3. LISINOPRIL [Concomitant]
     Route: 048

REACTIONS (3)
  - NEUTROPHIL COUNT DECREASED [None]
  - THROMBOCYTOPENIA [None]
  - WHITE BLOOD CELL COUNT DECREASED [None]
